FAERS Safety Report 9735442 (Version 1)
Quarter: 2013Q4

REPORT INFORMATION
  Report Type: Spontaneous
  Country: US (occurrence: US)
  Receive Date: 20131206
  Receipt Date: 20131206
  Transmission Date: 20140711
  Serious: No
  Sender: FDA-Public Use
  Company Number: US-GILEAD-2009-0022851

PATIENT
  Sex: Female
  Weight: 103.42 kg

DRUGS (14)
  1. LETAIRIS [Suspect]
     Indication: PULMONARY ARTERIAL HYPERTENSION
     Route: 048
     Dates: start: 20090611
  2. OXYGEN [Concomitant]
  3. MULTIVITAMIN [Concomitant]
  4. SINGULAIR [Concomitant]
  5. RESTASIS 0.05% [Concomitant]
  6. PREMARIN [Concomitant]
  7. SYNTHROID [Concomitant]
  8. FLECAINIDE [Concomitant]
  9. ZADITOR 0.025% [Concomitant]
  10. DEXAMETHASONE 0.5MG/5ML [Concomitant]
  11. FLUOROMETHOLONE 0.1% [Concomitant]
  12. TRIAMTERENE-HCTZ [Concomitant]
  13. XOPENEX [Concomitant]
  14. CYCLOSPORINE [Concomitant]

REACTIONS (2)
  - Tachycardia [Unknown]
  - Palpitations [Unknown]
